FAERS Safety Report 21585854 (Version 1)
Quarter: 2022Q4

REPORT INFORMATION
  Report Type: Spontaneous
  Country: FI (occurrence: FI)
  Receive Date: 20221111
  Receipt Date: 20221111
  Transmission Date: 20230113
  Serious: Yes (Other)
  Sender: FDA-Public Use
  Company Number: FI-PFIZER INC-PV202200100940

PATIENT
  Age: 49 Year
  Sex: Female

DRUGS (1)
  1. INFLIXIMAB [Suspect]
     Active Substance: INFLIXIMAB
     Dosage: 300 MG, CYCLIC
     Route: 042
     Dates: start: 20210616, end: 20220210

REACTIONS (8)
  - Alanine aminotransferase increased [Recovering/Resolving]
  - Arthralgia [Recovering/Resolving]
  - Eye symptom [Recovering/Resolving]
  - Lupus-like syndrome [Recovering/Resolving]
  - DNA antibody positive [Recovering/Resolving]
  - Histone antibody positive [Recovering/Resolving]
  - Hypoaesthesia [Recovering/Resolving]
  - Antinuclear antibody increased [Recovering/Resolving]

NARRATIVE: CASE EVENT DATE: 20220301
